FAERS Safety Report 9559783 (Version 1)
Quarter: 2013Q3

REPORT INFORMATION
  Report Type: Spontaneous
  Country: US (occurrence: None)
  Receive Date: 20130821
  Receipt Date: 20130821
  Transmission Date: 20140515
  Serious: Yes (Other)
  Sender: FDA-Public Use
  Company Number: 1000045806

PATIENT
  Age: 71 Year
  Sex: Female

DRUGS (9)
  1. TUDORZA PRESSAIR (ACLIDINIUM BROMIDE) (400 MICROGRAM, POWDER) [Suspect]
     Indication: CHRONIC OBSTRUCTIVE PULMONARY DISEASE
     Route: 055
     Dates: start: 20130606, end: 20130606
  2. PREDNISONE (PREDNISONE) [Concomitant]
  3. DULERA (MOMETASONE, FORMOTEROL) [Concomitant]
  4. OXYGEN (OXYGEN) [Concomitant]
  5. COMBIVENT (IPRATROPIUM, ALBUTEROL) [Concomitant]
  6. VENTOLIN HFA (SALBUTAMOL SULFATE) [Concomitant]
  7. ZOLOFT (SERTRALINE HYDROCHLORIDE) [Concomitant]
  8. ALPRAZOLAM (ALPRAZOLAM) [Concomitant]
  9. MUCINEX [Concomitant]

REACTIONS (2)
  - Dyspnoea [None]
  - Visual impairment [None]
